FAERS Safety Report 8363207-7 (Version None)
Quarter: 2012Q2

REPORT INFORMATION
  Report Type: 
  Country: None (occurrence: None)
  Receive Date: 20120514
  Receipt Date: 20120430
  Transmission Date: 20120825
  Serious: Yes (Other)
  Sender: FDA-Public Use
  Company Number: C12-005

PATIENT
  Age: 38 Year
  Sex: Female

DRUGS (2)
  1. STREPTOMYCIN [Suspect]
     Indication: BRUCELLOSIS
  2. RIFAMPICIN [Suspect]
     Indication: BRUCELLOSIS

REACTIONS (9)
  - URINE CALCIUM INCREASED [None]
  - ALKALOSIS HYPOKALAEMIC [None]
  - HYPOCALCAEMIA [None]
  - TETANY [None]
  - MUSCLE SPASMS [None]
  - PARAESTHESIA [None]
  - CHVOSTEK'S SIGN [None]
  - VITAMIN D DEFICIENCY [None]
  - BLOOD PARATHYROID HORMONE INCREASED [None]
